FAERS Safety Report 10071097 (Version 4)
Quarter: 2014Q2

REPORT INFORMATION
  Report Type: Spontaneous
  Country: US (occurrence: US)
  Receive Date: 20140410
  Receipt Date: 20140428
  Transmission Date: 20141212
  Serious: Yes (Hospitalization, Other)
  Sender: FDA-Public Use
  Company Number: US-JNJFOC-20140106011

PATIENT
  Sex: Female

DRUGS (1)
  1. ORTHONOVUM [Suspect]
     Indication: CONTRACEPTION
     Route: 048

REACTIONS (6)
  - Intestinal obstruction [Unknown]
  - Bipolar I disorder [Unknown]
  - Sexual dysfunction [Unknown]
  - Abnormal behaviour [Unknown]
  - Panic attack [Unknown]
  - Tooth loss [Unknown]
